FAERS Safety Report 13716747 (Version 1)
Quarter: 2017Q3

REPORT INFORMATION
  Report Type: Spontaneous
  Country: AT (occurrence: AT)
  Receive Date: 20170705
  Receipt Date: 20170705
  Transmission Date: 20171127
  Serious: Yes (Other)
  Sender: FDA-Public Use
  Company Number: AT-ASTRAZENECA-2017SE68255

PATIENT
  Age: 47 Year
  Sex: Female

DRUGS (10)
  1. DOMINAL (PROTHIPENDYL HYDROCHLORIDE) [Concomitant]
     Active Substance: PROTHIPENDYL HYDROCHLORIDE
     Dates: start: 20170103, end: 20170124
  2. SEROQUEL [Suspect]
     Active Substance: QUETIAPINE FUMARATE
     Dosage: DOSE ESCALATION TO 400 MG/D
     Route: 048
     Dates: start: 20170101, end: 20170117
  3. PANTOLOC [Concomitant]
     Active Substance: PANTOPRAZOLE SODIUM
     Dates: start: 20170105, end: 20170201
  4. SEROQUEL [Suspect]
     Active Substance: QUETIAPINE FUMARATE
     Dosage: CONTINUOUS REDUCTION AND DISCONTINUATION
     Route: 048
     Dates: start: 20170118, end: 20170126
  5. RISPERDAL [Suspect]
     Active Substance: RISPERIDONE
     Dates: start: 20170117, end: 20170121
  6. RISPERDAL [Suspect]
     Active Substance: RISPERIDONE
     Dates: start: 20170122, end: 20170208
  7. RISPERDAL [Suspect]
     Active Substance: RISPERIDONE
     Dosage: START AND DOSE ESCALATION TO 4MG/D
     Dates: start: 20170112, end: 20170116
  8. RISPERDAL [Suspect]
     Active Substance: RISPERIDONE
     Dates: start: 20170209, end: 20170209
  9. SERTRALINE [Concomitant]
     Active Substance: SERTRALINE HYDROCHLORIDE
     Dates: start: 20170102
  10. DOMINAL (PROTHIPENDYL HYDROCHLORIDE) [Concomitant]
     Active Substance: PROTHIPENDYL HYDROCHLORIDE
     Dosage: 40-80 MG
     Dates: start: 20170125, end: 20170208

REACTIONS (3)
  - Drug-induced liver injury [Unknown]
  - Parkinsonism [Unknown]
  - Hepatic enzyme increased [Recovered/Resolved]

NARRATIVE: CASE EVENT DATE: 20170117
